FAERS Safety Report 16623535 (Version 6)
Quarter: 2020Q1

REPORT INFORMATION
  Report Type: Spontaneous
  Country: CA (occurrence: CA)
  Receive Date: 20190724
  Receipt Date: 20200325
  Transmission Date: 20200409
  Serious: Yes (Other)
  Sender: FDA-Public Use
  Company Number: CA-CELLTRION INC.-2019CA022288

PATIENT

DRUGS (14)
  1. INFLECTRA [Suspect]
     Active Substance: INFLIXIMAB-DYYB
     Dosage: 400 MG OR 5MG/KG EVERY 8 WEEKS
     Route: 042
     Dates: start: 20191002
  2. INFLECTRA [Suspect]
     Active Substance: INFLIXIMAB-DYYB
     Dosage: 400 MG OR 5MG/KG EVERY 8 WEEKS
     Route: 042
     Dates: start: 20200122
  3. INFLECTRA [Suspect]
     Active Substance: INFLIXIMAB-DYYB
     Dosage: 400 MG OR 5MG/KG EVERY 8 WEEKS
     Route: 042
     Dates: start: 20190807
  4. VITAMIN B12 [MECOBALAMIN] [Concomitant]
     Dosage: UNK
     Route: 065
  5. INFLECTRA [Suspect]
     Active Substance: INFLIXIMAB-DYYB
     Dosage: 400 MG OR 5MG/KG EVERY 8 WEEKS
     Route: 042
     Dates: start: 20191127
  6. COLACE [Concomitant]
     Active Substance: DOCUSATE SODIUM
     Dosage: UNK
     Route: 065
  7. INFLECTRA [Suspect]
     Active Substance: INFLIXIMAB-DYYB
     Dosage: 400 MG OR 5MG/KG EVERY 8 WEEKS
     Route: 042
     Dates: start: 20200122
  8. IMURAN [Concomitant]
     Active Substance: AZATHIOPRINE
     Dosage: UNK
     Route: 065
  9. INFLECTRA [Suspect]
     Active Substance: INFLIXIMAB-DYYB
     Indication: CROHN^S DISEASE
     Dosage: 400 MG OR 5MG/KG EVERY 8 WEEKS
     Route: 042
     Dates: start: 20190627
  10. INFLECTRA [Suspect]
     Active Substance: INFLIXIMAB-DYYB
     Dosage: 400 MG OR 5MG/KG EVERY 8 WEEKS
     Route: 042
     Dates: start: 20200317
  11. INFLECTRA [Suspect]
     Active Substance: INFLIXIMAB-DYYB
     Dosage: 400 MG OR 5MG/KG EVERY 8 WEEKS
     Route: 042
     Dates: start: 20190710
  12. DILTIAZEM. [Concomitant]
     Active Substance: DILTIAZEM
     Dosage: UNK UNK, 2X/DAY
     Route: 065
  13. NIFEDIPINE. [Concomitant]
     Active Substance: NIFEDIPINE
     Dosage: UNK
     Route: 065
  14. PREDNISONE. [Concomitant]
     Active Substance: PREDNISONE
     Dosage: 20 MG, DAILY FOR A COUPLE OF WEEKS AND TAPER DOWN
     Route: 065

REACTIONS (7)
  - Intentional product use issue [Unknown]
  - Inappropriate schedule of product administration [Unknown]
  - Dehydration [Unknown]
  - Off label use [Unknown]
  - Condition aggravated [Unknown]
  - Blood pressure fluctuation [Unknown]
  - Hypotension [Unknown]

NARRATIVE: CASE EVENT DATE: 20190627
